FAERS Safety Report 4817752-9 (Version None)
Quarter: 2005Q3

REPORT INFORMATION
  Report Type: 
  Country: None (occurrence: None)
  Receive Date: 20050929
  Receipt Date: 20050718
  Transmission Date: 20060218
  Serious: No
  Sender: FDA-Public Use
  Company Number: 05P-163-0305946-00

PATIENT
  Age: 73 Year
  Sex: Female
  Weight: 37.6486 kg

DRUGS (10)
  1. HUMIRA [Suspect]
     Indication: RHEUMATOID ARTHRITIS
     Dosage: 40 MG, 1 IN 2 WK, SUBCUTANEOUS
     Route: 058
     Dates: start: 20050301
  2. ENSURE [Concomitant]
  3. TERBINAFINE HYDROCLORIDE [Concomitant]
  4. FORTEO [Concomitant]
  5. QUETIAPINE FUMARATE [Concomitant]
  6. PREDNISONE [Concomitant]
  7. THYROID TAB [Concomitant]
  8. FOLIC ACID [Concomitant]
  9. CALCIUM GLUCONATE [Concomitant]
  10. CITALOPRAM HYDROBROMIDE [Concomitant]

REACTIONS (4)
  - FATIGUE [None]
  - MUSCULAR WEAKNESS [None]
  - RHEUMATOID ARTHRITIS [None]
  - WEIGHT DECREASED [None]
